FAERS Safety Report 4932666-1 (Version None)
Quarter: 2006Q1

REPORT INFORMATION
  Report Type: 
  Country: None (occurrence: None)
  Receive Date: 20060301
  Receipt Date: 20060223
  Transmission Date: 20060701
  Serious: Yes (Other)
  Sender: FDA-Public Use
  Company Number: 200610861BCC

PATIENT
  Age: 55 Year
  Sex: Female
  Weight: 67.586 kg

DRUGS (4)
  1. ASPIRIN [Suspect]
     Indication: CARDIAC DISORDER
     Dosage: 325 MG, QD, ORAL
     Route: 048
     Dates: start: 19910101
  2. DYNACIRC [Concomitant]
  3. LOPRESSOR [Concomitant]
  4. TYLENOL (CAPLET) [Concomitant]

REACTIONS (1)
  - HEPATIC NEOPLASM [None]
